FAERS Safety Report 7014668-7 (Version None)
Quarter: 2010Q3

REPORT INFORMATION
  Report Type: 
  Country: None (occurrence: None)
  Receive Date: 20100927
  Receipt Date: 20100915
  Transmission Date: 20110219
  Serious: Yes (Other)
  Sender: FDA-Public Use
  Company Number: GB-JNJFOC-20100905687

PATIENT
  Age: 63 Year
  Sex: Male
  Weight: 73 kg

DRUGS (1)
  1. INFLIXIMAB, RECOMBINANT [Suspect]
     Indication: RHEUMATOID ARTHRITIS
     Route: 042

REACTIONS (5)
  - AORTIC ANEURYSM [None]
  - HYDRONEPHROSIS [None]
  - PULMONARY FIBROSIS [None]
  - RENAL IMPAIRMENT [None]
  - RETROPERITONEAL FIBROSIS [None]
